FAERS Safety Report 7216136-6 (Version None)
Quarter: 2011Q1

REPORT INFORMATION
  Report Type: 
  Country: None (occurrence: None)
  Receive Date: 20110107
  Receipt Date: 20101228
  Transmission Date: 20110831
  Serious: Yes (Other)
  Sender: FDA-Public Use
  Company Number: FI-PFIZER INC-2010180689

PATIENT
  Sex: Female

DRUGS (2)
  1. LYRICA [Suspect]
     Indication: TRIGEMINAL NEURALGIA
     Dosage: 150MG
     Dates: start: 20100930, end: 20100101
  2. PANACOD [Concomitant]
     Dosage: UNK
     Route: 048

REACTIONS (9)
  - SOMNOLENCE [None]
  - LIP SWELLING [None]
  - SWELLING FACE [None]
  - ALTERED STATE OF CONSCIOUSNESS [None]
  - OROPHARYNGEAL BLISTERING [None]
  - CIRCUMORAL OEDEMA [None]
  - BALANCE DISORDER [None]
  - CONVULSION [None]
  - HALLUCINATION [None]
